FAERS Safety Report 20957168 (Version 1)
Quarter: 2022Q2

REPORT INFORMATION
  Report Type: Spontaneous
  Country: US (occurrence: None)
  Receive Date: 20220614
  Receipt Date: 20220614
  Transmission Date: 20220721
  Serious: No
  Sender: FDA-Public Use
  Company Number: None

PATIENT
  Age: 76 Year
  Sex: Female

DRUGS (1)
  1. OTEZLA [Suspect]
     Active Substance: APREMILAST
     Indication: Psoriasis
     Dosage: OTHER STRENGTH : 10/20/30M;?FREQUENCY : TWICE A DAY;?
     Route: 048
     Dates: start: 20220607

REACTIONS (2)
  - Drug ineffective [None]
  - Psoriasis [None]

NARRATIVE: CASE EVENT DATE: 20220607
